FAERS Safety Report 6165404-8 (Version None)
Quarter: 2009Q2

REPORT INFORMATION
  Report Type: 
  Country: None (occurrence: None)
  Receive Date: 20090423
  Receipt Date: 20090414
  Transmission Date: 20091009
  Serious: Yes (Hospitalization, Disabling)
  Sender: FDA-Public Use
  Company Number: DE-PFIZER INC-2009197411

PATIENT

DRUGS (2)
  1. SOMATROPIN [Suspect]
     Indication: HYPOPITUITARISM
     Dosage: 2.6 MG, 1X/DAY
     Route: 058
     Dates: start: 20000815
  2. CLOMIPRAMINE [Concomitant]
     Dosage: 75 MG, 1X/DAY
     Route: 048
     Dates: start: 20071201

REACTIONS (1)
  - TYPE 1 DIABETES MELLITUS [None]
